FAERS Safety Report 8540521-3 (Version None)
Quarter: 2012Q3

REPORT INFORMATION
  Report Type: 
  Country: None (occurrence: None)
  Receive Date: 20120726
  Receipt Date: 20110801
  Transmission Date: 20120928
  Serious: No
  Sender: FDA-Public Use
  Company Number: US-ASTRAZENECA-2011SE45740

PATIENT
  Age: 69 Year
  Sex: Female
  Weight: 60.8 kg

DRUGS (5)
  1. CYMBALTA [Concomitant]
  2. SEROQUEL [Suspect]
     Route: 048
     Dates: end: 20110703
  3. SEROQUEL [Suspect]
     Indication: SLEEP DISORDER
     Route: 048
  4. ZYRTEC [Concomitant]
  5. PREMARIN [Concomitant]
     Route: 067

REACTIONS (9)
  - OFF LABEL USE [None]
  - NAUSEA [None]
  - DYSPNOEA [None]
  - COUGH [None]
  - INSOMNIA [None]
  - GAIT DISTURBANCE [None]
  - THERAPEUTIC RESPONSE UNEXPECTED [None]
  - WEIGHT DECREASED [None]
  - DRUG DOSE OMISSION [None]
